FAERS Safety Report 7914100-2 (Version None)
Quarter: 2011Q4

REPORT INFORMATION
  Report Type: 
  Country: None (occurrence: None)
  Receive Date: 20111114
  Receipt Date: 20111114
  Transmission Date: 20120403
  Serious: Yes (Other)
  Sender: FDA-Public Use
  Company Number: None

PATIENT
  Sex: Female
  Weight: 104.3273 kg

DRUGS (4)
  1. SEROQUEL [Concomitant]
  2. ALLEGRA [Concomitant]
  3. TOPIRAMATE [Suspect]
  4. BUDESONIDE [Concomitant]

REACTIONS (2)
  - PRODUCT SUBSTITUTION ISSUE [None]
  - NO THERAPEUTIC RESPONSE [None]
